FAERS Safety Report 4480280-7 (Version None)
Quarter: 2004Q4

REPORT INFORMATION
  Report Type: 
  Country: None (occurrence: None)
  Receive Date: 20041020
  Receipt Date: 20041012
  Transmission Date: 20050328
  Serious: Yes (Other)
  Sender: FDA-Public Use
  Company Number: NL-MERCK-0410NLD00017

PATIENT
  Age: 64 Year

DRUGS (1)
  1. VIOXX [Suspect]
     Indication: PAIN
     Route: 048
     Dates: start: 20000101, end: 20010301

REACTIONS (2)
  - ARTHROPATHY [None]
  - CEREBRAL INFARCTION [None]
